FAERS Safety Report 24160224 (Version 2)
Quarter: 2024Q3

REPORT INFORMATION
  Report Type: Spontaneous
  Country: US (occurrence: US)
  Receive Date: 20240801
  Receipt Date: 20240802
  Transmission Date: 20241017
  Serious: No
  Sender: Haleon PLC
  Company Number: US-HALEON-2189727

PATIENT
  Age: 37 Year
  Sex: Female

DRUGS (1)
  1. ABREVA [Suspect]
     Active Substance: DOCOSANOL
     Indication: Oral herpes

REACTIONS (4)
  - Paraesthesia oral [Not Recovered/Not Resolved]
  - Condition aggravated [Not Recovered/Not Resolved]
  - Oral herpes [Not Recovered/Not Resolved]
  - Product complaint [Unknown]
